FAERS Safety Report 17829873 (Version 1)
Quarter: 2020Q2

REPORT INFORMATION
  Report Type: Spontaneous
  Country: US (occurrence: US)
  Receive Date: 20200527
  Receipt Date: 20200527
  Transmission Date: 20200714
  Serious: Yes (Hospitalization)
  Sender: FDA-Public Use
  Company Number: None

PATIENT
  Sex: Female

DRUGS (1)
  1. IBRANCE [Suspect]
     Active Substance: PALBOCICLIB
     Indication: NEOPLASM MALIGNANT
     Dosage: OTHER FREQUENCY:QD21DAYSTHEN 7 OFF;?
     Route: 048
     Dates: start: 20190402

REACTIONS (2)
  - Product dose omission [None]
  - Haematochezia [None]
